FAERS Safety Report 14767746 (Version 1)
Quarter: 2018Q2

REPORT INFORMATION
  Report Type: Spontaneous
  Country: US (occurrence: US)
  Receive Date: 20180410
  Receipt Date: 20180410
  Transmission Date: 20180711
  Serious: Yes (Other)
  Sender: FDA-Public Use
  Company Number: None

PATIENT
  Age: 46 Year
  Sex: Female
  Weight: 100.35 kg

DRUGS (1)
  1. TAMSULOSIN [Suspect]
     Active Substance: TAMSULOSIN
     Indication: NEPHROLITHIASIS
     Dosage: ?          QUANTITY:10 CAPSULE(S);?
     Route: 048

REACTIONS (2)
  - Sinusitis [None]
  - Gastritis [None]

NARRATIVE: CASE EVENT DATE: 20180314
